FAERS Safety Report 23651176 (Version 1)
Quarter: 2024Q1

REPORT INFORMATION
  Report Type: Spontaneous
  Country: CH (occurrence: CH)
  Receive Date: 20240320
  Receipt Date: 20240320
  Transmission Date: 20240410
  Serious: Yes (Hospitalization, Other)
  Sender: FDA-Public Use
  Company Number: CH-AMGEN-CHESP2024053312

PATIENT
  Age: 35 Year
  Sex: Female
  Weight: 70.5 kg

DRUGS (19)
  1. NEULASTA [Suspect]
     Active Substance: PEGFILGRASTIM
     Indication: Chemotherapy
     Dosage: 16.12.2023, 11.01.2024, 01.02.2024, 15.02.2024 ; IN TOTAL
     Route: 058
     Dates: start: 20231216, end: 20231216
  2. NEULASTA [Suspect]
     Active Substance: PEGFILGRASTIM
     Dosage: 16.12.2023, 11.01.2024, 01.02.2024, 15.02.2024 ; IN TOTAL
     Route: 058
     Dates: start: 20240111, end: 20240111
  3. NEULASTA [Suspect]
     Active Substance: PEGFILGRASTIM
     Dosage: 16.12.2023, 11.01.2024, 01.02.2024, 15.02.2024 ; IN TOTAL
     Route: 058
     Dates: start: 20240201, end: 20240201
  4. NEULASTA [Suspect]
     Active Substance: PEGFILGRASTIM
     Dosage: 16.12.2023, 11.01.2024, 01.02.2024, 15.02.2024. WILL BE CONTINUED IN NEXT CYCLE.  ; CYCLICAL
     Route: 058
     Dates: start: 20240215
  5. DOXORUBICIN [Suspect]
     Active Substance: DOXORUBICIN
     Indication: Hodgkin^s disease
     Dosage: 35 MG/M2  IN CYCLE 1 (13.12.-27.12.23 ) AND 2 (08.01.-15.01.24 ) BEACOPP  PROTOCOL (ON D1 OF EACH...
     Route: 041
     Dates: start: 20231213, end: 20231213
  6. DOXORUBICIN [Suspect]
     Active Substance: DOXORUBICIN
     Dosage: 35 MG/M2  IN CYCLE 1 (13.12.-27.12.23 ) AND 2 (08.01.-15.01.24 ) BEACOPP  PROTOCOL (ON D1 OF EACH...
     Route: 041
     Dates: start: 20240129, end: 20240129
  7. DOXORUBICIN [Suspect]
     Active Substance: DOXORUBICIN
     Dosage: 35 MG/M2  IN CYCLE 1 (13.12.-27.12.23 ) AND 2 (08.01.-15.01.24 ) BEACOPP  PROTOCOL (ON D1 OF EACH...
     Route: 041
     Dates: start: 20240108, end: 20240108
  8. DOXORUBICIN [Suspect]
     Active Substance: DOXORUBICIN
     Dosage: WILL BE CONTINUED IN NEXT CYCLE (25ML/M2) ; CYCLICAL
     Route: 041
     Dates: start: 20240212
  9. VINBLASTINE SULFATE [Suspect]
     Active Substance: VINBLASTINE SULFATE
     Indication: Hodgkin^s disease
     Dosage: ABVD PROTOCOL ON D1 OF EACH CYCLE, WILL BE CONTINUED ; CYCLICAL
     Route: 040
     Dates: start: 20240129
  10. DACARBAZINE [Suspect]
     Active Substance: DACARBAZINE
     Indication: Hodgkin^s disease
     Dosage: ABVD PROTOCOL ON D1 OF EACH CYCLE, WILL BE CONTINUED ; CYCLICAL
     Route: 041
     Dates: start: 20240129
  11. BLEOMYCIN [Suspect]
     Active Substance: BLEOMYCIN SULFATE
     Indication: Hodgkin^s disease
     Dosage: BLEOMYCIN GIVEN CYCLICALLY:13.12.-27.12.23 ZYKLUS 1 BEACOPP PROTOCOL ON D15 (27.12.) 08.01.-15....
     Route: 041
     Dates: start: 20231227, end: 20231227
  12. BLEOMYCIN [Suspect]
     Active Substance: BLEOMYCIN SULFATE
     Dosage: BLEOMYCIN GIVEN CYCLICALLY:13.12.-27.12.23 ZYKLUS 1 BEACOPP PROTOCOL ON D15 (27.12.) 08.01.-15....
     Route: 041
     Dates: start: 20240115, end: 20240115
  13. BLEOMYCIN [Suspect]
     Active Substance: BLEOMYCIN SULFATE
     Dosage: BLEOMYCIN GIVEN CYCLICALLY:13.12.-27.12.23 ZYKLUS 1 BEACOPP PROTOCOL ON D15 (27.12.) 08.01.-15....
     Route: 041
     Dates: start: 20240129, end: 20240129
  14. BLEOMYCIN [Suspect]
     Active Substance: BLEOMYCIN SULFATE
     Dosage: BLEOMYCIN GIVEN CYCLICALLY:13.12.-27.12.23 ZYKLUS 1 BEACOPP PROTOCOL ON D15 (27.12.) 08.01.-15....
     Route: 041
     Dates: start: 20240212
  15. ACETAMINOPHEN [Concomitant]
     Active Substance: ACETAMINOPHEN
     Indication: Pain
     Dosage: UNK
     Route: 048
  16. CHLORHEXIDINE GLUCONATE;LIDOCAINE HYDROCHLORIDE [Concomitant]
     Dosage: UNK
     Route: 002
  17. IBUPROFEN [Concomitant]
     Active Substance: IBUPROFEN
     Indication: Pain
     Dosage: UNK
     Route: 048
  18. BACTRIM [Concomitant]
     Active Substance: SULFAMETHOXAZOLE\TRIMETHOPRIM
     Indication: Antifungal prophylaxis
     Dosage: ON MONDAYS, WEDNESDAYS AND FRIDAYS 1 TABLET IN THE MORNING ; CYCLICAL
     Route: 048
     Dates: start: 202312
  19. VALTREX [Concomitant]
     Active Substance: VALACYCLOVIR HYDROCHLORIDE
     Indication: Antiviral prophylaxis
     Dosage: 1-0-1
     Route: 048
     Dates: start: 202312

REACTIONS (4)
  - Pain [Recovered/Resolved]
  - Oral pain [Recovered/Resolved]
  - Neuralgia [Recovered/Resolved]
  - Decreased appetite [Recovered/Resolved]

NARRATIVE: CASE EVENT DATE: 20240130
